FAERS Safety Report 12771689 (Version 1)
Quarter: 2016Q3

REPORT INFORMATION
  Report Type: Spontaneous
  Country: SA (occurrence: SA)
  Receive Date: 20160922
  Receipt Date: 20160922
  Transmission Date: 20161109
  Serious: Yes (Hospitalization)
  Sender: FDA-Public Use
  Company Number: SA-PERRIGO-16SA019981

PATIENT
  Age: 42 Year
  Sex: Male

DRUGS (2)
  1. LORMETAZEPAM [Suspect]
     Active Substance: LORMETAZEPAM
     Indication: BACK PAIN
     Dosage: UNK
     Route: 065
  2. ACETAMINOPHEN. [Suspect]
     Active Substance: ACETAMINOPHEN
     Indication: BACK PAIN
     Dosage: 4 G, QD
     Route: 065

REACTIONS (6)
  - Nausea [Recovered/Resolved]
  - Poisoning [None]
  - Vomiting [Recovered/Resolved]
  - Abdominal pain [Recovered/Resolved]
  - Renal impairment [Recovered/Resolved]
  - Hepatic encephalopathy [Recovered/Resolved]
